FAERS Safety Report 6870895-0 (Version None)
Quarter: 2010Q3

REPORT INFORMATION
  Report Type: 
  Country: None (occurrence: None)
  Receive Date: 20100723
  Receipt Date: 20100712
  Transmission Date: 20110219
  Serious: Yes (Other)
  Sender: FDA-Public Use
  Company Number: PHHY2010US45770

PATIENT
  Sex: Female

DRUGS (1)
  1. DIOVAN HCT [Suspect]
     Dosage: 80/12.5 MG

REACTIONS (4)
  - BLOOD PRESSURE DECREASED [None]
  - DRUG DOSE OMISSION [None]
  - HEART RATE INCREASED [None]
  - HEART RATE IRREGULAR [None]
